FAERS Safety Report 7722567-8 (Version None)
Quarter: 2011Q3

REPORT INFORMATION
  Report Type: 
  Country: None (occurrence: None)
  Receive Date: 20110831
  Receipt Date: 20110824
  Transmission Date: 20111222
  Serious: Yes (Life-Threatening, Hospitalization)
  Sender: FDA-Public Use
  Company Number: CH-GENZYME-CLOF-1001749

PATIENT
  Sex: Female
  Weight: 78 kg

DRUGS (4)
  1. AMSACRINE [Suspect]
     Indication: ACUTE MYELOID LEUKAEMIA
     Dosage: 220 MG, QD
     Route: 042
     Dates: start: 20110730, end: 20110801
  2. EVOLTRA [Suspect]
     Indication: ACUTE MYELOID LEUKAEMIA
     Dosage: 18 MG, QD
     Route: 042
     Dates: start: 20110728, end: 20110801
  3. CYTARABINE [Suspect]
     Indication: ACUTE MYELOID LEUKAEMIA
     Dosage: 3600 MG, QD
     Route: 042
     Dates: start: 20110727, end: 20110802
  4. POSACONAZOLE [Concomitant]
     Indication: ANTIFUNGAL PROPHYLAXIS
     Dosage: 200 MG X 3
     Route: 048
     Dates: start: 20110803, end: 20110812

REACTIONS (1)
  - NEUTROPENIC COLITIS [None]
